FAERS Safety Report 21052112 (Version 2)
Quarter: 2023Q1

REPORT INFORMATION
  Report Type: Other
  Country: GB (occurrence: None)
  Receive Date: 20220707
  Receipt Date: 20230303
  Transmission Date: 20230418
  Serious: Yes (Death, Other)
  Sender: FDA-Public Use
  Company Number: GB-ROCHE-3129613

PATIENT
  Sex: Male

DRUGS (1)
  1. ESBRIET [Suspect]
     Active Substance: PIRFENIDONE
     Indication: Idiopathic pulmonary fibrosis
     Dosage: 6 TABLETS DAILY
     Route: 048
     Dates: start: 20191001

REACTIONS (2)
  - Suicidal ideation [Unknown]
  - Death [Fatal]

NARRATIVE: CASE EVENT DATE: 20230218
